FAERS Safety Report 15857946 (Version 1)
Quarter: 2019Q1

REPORT INFORMATION
  Report Type: Report from Study
  Country: GB (occurrence: GB)
  Receive Date: 20190123
  Receipt Date: 20190123
  Transmission Date: 20190417
  Serious: Yes (Other)
  Sender: FDA-Public Use
  Company Number: GB-JNJFOC-20190123190

PATIENT
  Age: 67 Year
  Sex: Male
  Weight: 82.4 kg

DRUGS (11)
  1. SALBUTAMOL [Concomitant]
     Active Substance: ALBUTEROL
     Dates: start: 20130515
  2. LOSARTAN. [Concomitant]
     Active Substance: LOSARTAN
     Dates: start: 20040615
  3. WARFARIN [Concomitant]
     Active Substance: WARFARIN
     Dates: start: 20140815
  4. FUROSEMIDE. [Concomitant]
     Active Substance: FUROSEMIDE
     Dates: start: 20141215
  5. STELARA [Suspect]
     Active Substance: USTEKINUMAB
     Indication: PSORIASIS
     Route: 058
     Dates: start: 20130830, end: 20130830
  6. DOVOBET [Concomitant]
     Active Substance: BETAMETHASONE\CALCIPOTRIENE
     Dates: start: 20130115
  7. DIPROBASE [Concomitant]
     Active Substance: CHLOROCRESOL
     Route: 061
     Dates: start: 20130115
  8. ASPIRIN. [Concomitant]
     Active Substance: ASPIRIN
     Dates: start: 20141215
  9. AMIODARONE [Concomitant]
     Active Substance: AMIODARONE
     Dates: start: 20141216
  10. STELARA [Suspect]
     Active Substance: USTEKINUMAB
     Indication: PSORIASIS
     Route: 058
     Dates: start: 20160706, end: 20181122
  11. COCODAMOL [Concomitant]
     Active Substance: ACETAMINOPHEN\CODEINE PHOSPHATE
     Dates: start: 20130515

REACTIONS (1)
  - Squamous cell carcinoma [Recovered/Resolved with Sequelae]

NARRATIVE: CASE EVENT DATE: 20181025
